FAERS Safety Report 5062698-7 (Version None)
Quarter: 2006Q3

REPORT INFORMATION
  Report Type: 
  Country: None (occurrence: None)
  Receive Date: 20060724
  Receipt Date: 20060724
  Transmission Date: 20061208
  Serious: Yes (Hospitalization, Other)
  Sender: FDA-Public Use
  Company Number: None

PATIENT
  Sex: Male

DRUGS (1)
  1. KETEK [Suspect]
     Indication: BRONCHITIS
     Dates: start: 20051215, end: 20051220

REACTIONS (1)
  - HEPATITIS [None]
